FAERS Safety Report 4423109-5 (Version None)
Quarter: 2004Q3

REPORT INFORMATION
  Report Type: 
  Country: None (occurrence: None)
  Receive Date: 20040805
  Receipt Date: 20040726
  Transmission Date: 20050211
  Serious: Yes (Hospitalization, Other)
  Sender: FDA-Public Use
  Company Number: US-JNJFOC-20040501479

PATIENT
  Age: 35 Year
  Sex: Female

DRUGS (1)
  1. DURAGESIC [Suspect]
     Indication: BACK PAIN
     Dosage: 75 UG/HR, 1 IN 72 HOUR, TRANSDERMAL
     Route: 062

REACTIONS (2)
  - GRAND MAL CONVULSION [None]
  - OEDEMA PERIPHERAL [None]
